FAERS Safety Report 9393747 (Version 2)
Quarter: 2013Q4

REPORT INFORMATION
  Report Type: Spontaneous
  Country: GB (occurrence: GB)
  Receive Date: 20130710
  Receipt Date: 20131030
  Transmission Date: 20140711
  Serious: Yes (Disabling, Other)
  Sender: FDA-Public Use
  Company Number: GB-B.I. PHARMACEUTICALS,INC./RIDGEFIELD-2013-UK-01366UK

PATIENT
  Age: 63 Year
  Sex: Male
  Weight: 75 kg

DRUGS (4)
  1. PRADAXA [Suspect]
     Indication: DRESSLER^S SYNDROME
     Dosage: 300 MG
     Route: 048
     Dates: start: 20130424, end: 20130531
  2. ASPIRIN [Concomitant]
     Dosage: 75 MG
  3. PERINDOPRIL [Concomitant]
     Dosage: 4 MG
  4. SIMVASTATIN [Concomitant]
     Dosage: 20 MG

REACTIONS (3)
  - Neuropathy peripheral [Not Recovered/Not Resolved]
  - Paraesthesia [Not Recovered/Not Resolved]
  - Off label use [Unknown]
